FAERS Safety Report 7512459-1 (Version None)
Quarter: 2011Q2

REPORT INFORMATION
  Report Type: 
  Country: None (occurrence: None)
  Receive Date: 20110531
  Receipt Date: 20110524
  Transmission Date: 20111010
  Serious: No
  Sender: FDA-Public Use
  Company Number: JP-PFIZER INC-2011101553

PATIENT
  Age: 26 Year
  Sex: Male

DRUGS (2)
  1. SULFASALAZINE [Suspect]
     Indication: COLITIS ULCERATIVE
     Dosage: 10000 MG DAILY
     Route: 048
     Dates: start: 20100510, end: 20100517
  2. PREDNISOLONE [Concomitant]
     Indication: COLITIS ULCERATIVE
     Dosage: UNK

REACTIONS (1)
  - LIVER DISORDER [None]
